FAERS Safety Report 6240707-7 (Version None)
Quarter: 2009Q2

REPORT INFORMATION
  Report Type: 
  Country: None (occurrence: None)
  Receive Date: 20090623
  Receipt Date: 20090210
  Transmission Date: 20091009
  Serious: No
  Sender: FDA-Public Use
  Company Number: US-ASTRAZENECA-2009UW03831

PATIENT
  Age: 29814 Day
  Sex: Male
  Weight: 79.4 kg

DRUGS (3)
  1. PULMICORT RESPULES [Suspect]
     Indication: ASTHMA
     Dosage: 0.5 MG, TWICE DAILY
     Route: 055
     Dates: start: 20090209
  2. DIOVAN [Concomitant]
  3. SPIROLACTONE [Concomitant]

REACTIONS (1)
  - BLOOD PRESSURE INCREASED [None]
